FAERS Safety Report 17300287 (Version 1)
Quarter: 2020Q1

REPORT INFORMATION
  Report Type: Spontaneous
  Country: US (occurrence: US)
  Receive Date: 20200122
  Receipt Date: 20200122
  Transmission Date: 20200409
  Serious: No
  Sender: FDA-Public Use
  Company Number: US-ALLERGAN-1901681US

PATIENT
  Age: 56 Year
  Sex: Female

DRUGS (4)
  1. RESTASIS [Suspect]
     Active Substance: CYCLOSPORINE
     Indication: DRY EYE
     Dosage: 2 GTT, BID
     Route: 047
  2. RESTASIS [Suspect]
     Active Substance: CYCLOSPORINE
     Dosage: 2 GTT, BID
     Route: 047
     Dates: start: 201809
  3. REFRESH TEARS [Concomitant]
     Active Substance: CARBOXYMETHYLCELLULOSE SODIUM
     Indication: DRY EYE
     Dosage: UNK
     Route: 047
  4. REFRESH GEL DROPS [Concomitant]
     Indication: DRY EYE
     Dosage: UNK
     Route: 047

REACTIONS (6)
  - Incorrect dose administered [Unknown]
  - Product container issue [Unknown]
  - Drug ineffective [Unknown]
  - Eye irritation [Not Recovered/Not Resolved]
  - Ocular hyperaemia [Unknown]
  - Product dose omission [Unknown]

NARRATIVE: CASE EVENT DATE: 201809
